FAERS Safety Report 7608409-X (Version None)
Quarter: 2011Q3

REPORT INFORMATION
  Report Type: 
  Country: None (occurrence: None)
  Receive Date: 20110714
  Receipt Date: 20110706
  Transmission Date: 20111222
  Serious: Yes (Hospitalization)
  Sender: FDA-Public Use
  Company Number: DE-MPIJNJ-2010-03767

PATIENT

DRUGS (3)
  1. PREDNISONE [Concomitant]
     Indication: MULTIPLE MYELOMA
     Dosage: 100 MG, UNK
     Route: 048
     Dates: start: 20100316, end: 20100712
  2. MELPHALAN HYDROCHLORIDE [Concomitant]
     Indication: MULTIPLE MYELOMA
     Dosage: 16 MG, UNK
     Route: 048
     Dates: start: 20100316, end: 20100712
  3. VELCADE [Suspect]
     Indication: MULTIPLE MYELOMA
     Dosage: 1.88 MG, UNK
     Route: 042
     Dates: start: 20100316

REACTIONS (1)
  - DIARRHOEA [None]
